FAERS Safety Report 7406243-7 (Version None)
Quarter: 2011Q2

REPORT INFORMATION
  Report Type: 
  Country: None (occurrence: None)
  Receive Date: 20110401
  Receipt Date: 20110322
  Transmission Date: 20111010
  Serious: Yes (Other)
  Sender: FDA-Public Use
  Company Number: 2011SP013249

PATIENT
  Sex: Female

DRUGS (2)
  1. POSACONAZOLE [Suspect]
     Indication: PNEUMONIA FUNGAL
     Dates: end: 20091001
  2. ABATACEPT [Concomitant]

REACTIONS (2)
  - CONVULSION [None]
  - ELECTROCARDIOGRAM QT PROLONGED [None]
